FAERS Safety Report 25977460 (Version 1)
Quarter: 2025Q4

REPORT INFORMATION
  Report Type: Spontaneous
  Country: US (occurrence: US)
  Receive Date: 20251030
  Receipt Date: 20251030
  Transmission Date: 20260117
  Serious: Yes (Other)
  Sender: AZURITY PHARMACEUTICALS
  Company Number: US-AZURITY PHARMACEUTICALS, INC.-AZR202510-003299

PATIENT
  Age: 21 Year
  Sex: Female
  Weight: 52 kg

DRUGS (9)
  1. DEXMEDETOMIDINE HYDROCHLORIDE [Suspect]
     Active Substance: DEXMEDETOMIDINE HYDROCHLORIDE
     Indication: Sedative therapy
     Dosage: 1 MICROGRAM/KILOGRAM (LOADING DOSE)
     Route: 042
  2. DEXMEDETOMIDINE HYDROCHLORIDE [Suspect]
     Active Substance: DEXMEDETOMIDINE HYDROCHLORIDE
     Dosage: 1 MICROGRAM/KILOGRAM, QH
     Route: 042
  3. DEXMEDETOMIDINE HYDROCHLORIDE [Suspect]
     Active Substance: DEXMEDETOMIDINE HYDROCHLORIDE
     Dosage: 0.6 MICROGRAM/KILOGRAM, QH
     Route: 042
  4. FENTANYL [Suspect]
     Active Substance: FENTANYL
     Indication: Sedative therapy
     Dosage: 25 MICROGRAM
     Route: 042
  5. GLYCOPYRROLATE [Suspect]
     Active Substance: GLYCOPYRROLATE
     Indication: Bradycardia
     Dosage: 0.2 MICROGRAM, TWO SEPARATE PUSHES, 3 MINUTES APART
     Route: 042
  6. GLYCOPYRROLATE [Suspect]
     Active Substance: GLYCOPYRROLATE
     Indication: Sinus arrest
  7. HEPARIN [Suspect]
     Active Substance: HEPARIN SODIUM
     Indication: Product used for unknown indication
     Dosage: 4000 UNITS, UNK
     Route: 042
  8. HEPARIN [Suspect]
     Active Substance: HEPARIN SODIUM
     Dosage: 3000 UNITS,UNK
     Route: 042
  9. HEPARIN [Suspect]
     Active Substance: HEPARIN SODIUM
     Dosage: 20 U/KG/HOUR
     Route: 042

REACTIONS (4)
  - Hypertensive crisis [Recovering/Resolving]
  - Drug interaction [Unknown]
  - Acute pulmonary oedema [Recovering/Resolving]
  - Tachycardia [Recovering/Resolving]
